FAERS Safety Report 23924295 (Version 1)
Quarter: 2024Q2

REPORT INFORMATION
  Report Type: Spontaneous
  Country: FR (occurrence: FR)
  Receive Date: 20240531
  Receipt Date: 20240531
  Transmission Date: 20240716
  Serious: Yes (Other)
  Sender: FDA-Public Use
  Company Number: FR-CELLTRION INC.-2024FR012583

PATIENT

DRUGS (12)
  1. ADALIMUMAB [Suspect]
     Active Substance: ADALIMUMAB\ISOPROPYL ALCOHOL
     Indication: Sarcoidosis
     Dosage: 40 MG, 1 CYCLE
     Route: 058
     Dates: start: 20210610, end: 202112
  2. INFLIXIMAB [Suspect]
     Active Substance: INFLIXIMAB
     Indication: Sarcoidosis
     Dosage: 345 MG, EVERY 1 MONTH
     Route: 042
     Dates: start: 20220118
  3. EZETIMIBE [Concomitant]
     Active Substance: EZETIMIBE
  4. METHOTREXATE SODIUM [Concomitant]
     Active Substance: METHOTREXATE SODIUM
  5. CRESTOR [Concomitant]
     Active Substance: ROSUVASTATIN CALCIUM
  6. HYDROCORTISONE [Concomitant]
     Active Substance: HYDROCORTISONE
  7. KARDEGIC [Concomitant]
     Active Substance: ASPIRIN DL-LYSINE
  8. IRBESARTAN [Concomitant]
     Active Substance: IRBESARTAN
  9. FOLIC ACID [Concomitant]
     Active Substance: FOLIC ACID
  10. CHOLECALCIFEROL [Concomitant]
     Active Substance: CHOLECALCIFEROL
  11. TRANDATE [Concomitant]
     Active Substance: LABETALOL HYDROCHLORIDE
  12. METFORMIN PAMOATE [Concomitant]
     Active Substance: METFORMIN PAMOATE

REACTIONS (3)
  - Condition aggravated [Recovering/Resolving]
  - Optic neuritis [Recovering/Resolving]
  - Intentional product use issue [Unknown]

NARRATIVE: CASE EVENT DATE: 20220322
